FAERS Safety Report 5734559-9 (Version None)
Quarter: 2008Q2

REPORT INFORMATION
  Report Type: 
  Country: None (occurrence: None)
  Receive Date: 20080512
  Receipt Date: 20080430
  Transmission Date: 20081010
  Serious: Yes (Hospitalization, Other)
  Sender: FDA-Public Use
  Company Number: US-AMGEN-QUU275009

PATIENT
  Sex: Male

DRUGS (5)
  1. ENBREL [Suspect]
     Indication: PSORIASIS
     Route: 058
     Dates: start: 20071123, end: 20071220
  2. LAMICTAL [Concomitant]
  3. KLONOPIN [Concomitant]
  4. TESTOSTERONE [Concomitant]
  5. UNSPECIFIED MEDICATION [Concomitant]

REACTIONS (8)
  - EUPHORIC MOOD [None]
  - FOOD CRAVING [None]
  - GINGIVAL ABSCESS [None]
  - MUCOUS MEMBRANE DISORDER [None]
  - MULTIPLE SCLEROSIS [None]
  - NIGHT SWEATS [None]
  - TOOTH LOSS [None]
  - WEIGHT DECREASED [None]
